FAERS Safety Report 4464068-9 (Version None)
Quarter: 2004Q4

REPORT INFORMATION
  Report Type: 
  Country: None (occurrence: None)
  Receive Date: 20041001
  Receipt Date: 20040922
  Transmission Date: 20050328
  Serious: Yes (Hospitalization)
  Sender: FDA-Public Use
  Company Number: FR-BRISTOL-MYERS SQUIBB COMPANY-12709762

PATIENT
  Age: 45 Year
  Sex: Male

DRUGS (2)
  1. ETOPOPHOS [Suspect]
     Indication: BURKITT'S LYMPHOMA STAGE IV
     Route: 042
     Dates: start: 20040423, end: 20040426
  2. ARACYTINE [Suspect]
     Indication: BURKITT'S LYMPHOMA STAGE IV
     Route: 042
     Dates: start: 20040422, end: 20040426

REACTIONS (2)
  - BONE MARROW DEPRESSION [None]
  - HYPERBILIRUBINAEMIA [None]
